FAERS Safety Report 6939481-8 (Version None)
Quarter: 2010Q3

REPORT INFORMATION
  Report Type: 
  Country: None (occurrence: None)
  Receive Date: 20100819
  Receipt Date: 20100813
  Transmission Date: 20110219
  Serious: Yes (Death)
  Sender: FDA-Public Use
  Company Number: 2010US003087

PATIENT
  Sex: Female

DRUGS (1)
  1. AMBISOME [Suspect]
     Indication: FUNGAL INFECTION

REACTIONS (4)
  - BACTERIAL INFECTION [None]
  - BONE MARROW FAILURE [None]
  - FUNGAL INFECTION [None]
  - PULMONARY ALVEOLAR HAEMORRHAGE [None]
